FAERS Safety Report 5057985-2 (Version None)
Quarter: 2006Q3

REPORT INFORMATION
  Report Type: 
  Country: None (occurrence: None)
  Receive Date: 20060721
  Receipt Date: 20060502
  Transmission Date: 20061208
  Serious: No
  Sender: FDA-Public Use
  Company Number: US-GLAXOSMITHKLINE-A0604076A

PATIENT
  Sex: Female

DRUGS (4)
  1. AVANDIA [Suspect]
     Dosage: 1TAB PER DAY
     Route: 048
  2. PREMARIN [Concomitant]
  3. NEXIUM [Concomitant]
  4. LASIX [Concomitant]

REACTIONS (1)
  - OEDEMA [None]
